FAERS Safety Report 6248380-9 (Version None)
Quarter: 2009Q2

REPORT INFORMATION
  Report Type: 
  Country: None (occurrence: None)
  Receive Date: 20090629
  Receipt Date: 20090623
  Transmission Date: 20091009
  Serious: Yes (Death, Congenital Anomaly)
  Sender: FDA-Public Use
  Company Number: PHHY2009DK06233

PATIENT
  Sex: Female

DRUGS (1)
  1. SANDOSTATIN LAR [Suspect]
     Dosage: MATERNAL DOSE: 1 DOSE MONTHLY
     Route: 064
     Dates: start: 19990901

REACTIONS (6)
  - CONGENITAL ANOMALY [None]
  - DRUG EXPOSURE DURING PREGNANCY [None]
  - INTESTINAL ISCHAEMIA [None]
  - NECROTISING COLITIS [None]
  - SEPSIS NEONATAL [None]
  - SURGERY [None]
